FAERS Safety Report 7465571-X (Version None)
Quarter: 2011Q2

REPORT INFORMATION
  Report Type: 
  Country: None (occurrence: None)
  Receive Date: 20110509
  Receipt Date: 20110429
  Transmission Date: 20111010
  Serious: Yes (Other)
  Sender: FDA-Public Use
  Company Number: A0924902A

PATIENT
  Age: 41 Year
  Sex: Female

DRUGS (1)
  1. ALLI [Suspect]
     Route: 048

REACTIONS (4)
  - DIARRHOEA [None]
  - TREATMENT NONCOMPLIANCE [None]
  - HAEMORRHOIDAL HAEMORRHAGE [None]
  - RECTAL HAEMORRHAGE [None]
